FAERS Safety Report 15201883 (Version 8)
Quarter: 2019Q1

REPORT INFORMATION
  Report Type: Spontaneous
  Country: US (occurrence: US)
  Receive Date: 20180726
  Receipt Date: 20190320
  Transmission Date: 20190417
  Serious: Yes (Disabling, Other)
  Sender: FDA-Public Use
  Company Number: PHEH2018US029903

PATIENT
  Sex: Female
  Weight: 63 kg

DRUGS (5)
  1. VALSARTAN. [Suspect]
     Active Substance: VALSARTAN
     Indication: BLOOD PRESSURE MEASUREMENT
     Route: 048
  2. ATENOLOL. [Suspect]
     Active Substance: ATENOLOL
     Indication: BLOOD PRESSURE MEASUREMENT
     Dosage: UNK UNK, QD
     Route: 048
  3. BYSTOLIC [Concomitant]
     Active Substance: NEBIVOLOL HYDROCHLORIDE
     Indication: PRODUCT USED FOR UNKNOWN INDICATION
     Dosage: 1.5 DF, QD (ONE FULL TABLET IN THE MORNING AND A HALF AT NIGHT)
     Route: 065
  4. EXFORGE [Suspect]
     Active Substance: AMLODIPINE BESYLATE\VALSARTAN
     Indication: BLOOD PRESSURE MEASUREMENT
     Dosage: 1 DF, QD
     Route: 048
     Dates: start: 2007
  5. AMLODIPINE [Suspect]
     Active Substance: AMLODIPINE BESYLATE
     Indication: BLOOD PRESSURE MEASUREMENT
     Dosage: UNK UNK, QD
     Route: 048

REACTIONS (11)
  - Drug ineffective [Unknown]
  - Intentional self-injury [Unknown]
  - Blood pressure increased [Unknown]
  - Deafness [Recovered/Resolved]
  - Joint swelling [Recovered/Resolved]
  - Accelerated hypertension [Recovered/Resolved]
  - Skin wrinkling [Recovered/Resolved]
  - Hypersensitivity [Unknown]
  - Hallucination, visual [Unknown]
  - Oedema peripheral [Recovered/Resolved]
  - Headache [Unknown]
